FAERS Safety Report 4481260-8 (Version None)
Quarter: 2004Q4

REPORT INFORMATION
  Report Type: 
  Country: None (occurrence: None)
  Receive Date: 20040923
  Receipt Date: 20040813
  Transmission Date: 20050328
  Serious: No
  Sender: FDA-Public Use
  Company Number: USA030433704

PATIENT
  Age: 74 Year
  Sex: Female
  Weight: 77 kg

DRUGS (3)
  1. FORTEO [Suspect]
     Indication: OSTEOPOROSIS
     Dosage: 20 UG/1 DAY
     Dates: start: 20030303
  2. PERCOCET [Concomitant]
  3. TYLENOL [Concomitant]

REACTIONS (7)
  - CHEST WALL PAIN [None]
  - CONFUSIONAL STATE [None]
  - INJECTION SITE HAEMORRHAGE [None]
  - INJECTION SITE MASS [None]
  - PAIN [None]
  - RASH ERYTHEMATOUS [None]
  - WEIGHT DECREASED [None]
